FAERS Safety Report 9950641 (Version 1)
Quarter: 2014Q1

REPORT INFORMATION
  Report Type: Report from Study
  Country: US (occurrence: US)
  Receive Date: 20140304
  Receipt Date: 20140304
  Transmission Date: 20141002
  Serious: No
  Sender: FDA-Public Use
  Company Number: US-ABBVIE-13P-163-1069363-00

PATIENT
  Age: 66 Year
  Sex: Male

DRUGS (10)
  1. HUMIRA [Suspect]
     Indication: CROHN^S DISEASE
     Dosage: STARTER DOSE
     Dates: start: 20130324
  2. PREDNISONE [Concomitant]
     Indication: CROHN^S DISEASE
     Dosage: 4 TABS DAILY
     Route: 048
  3. METRONIDAZOLE [Concomitant]
     Indication: CROHN^S DISEASE
     Route: 048
  4. ONDANSETRON ODT [Concomitant]
     Indication: NAUSEA
     Dosage: AFTER EVERY MEAL
  5. DICYCLOMINE [Concomitant]
     Indication: MUSCLE SPASMS
     Dosage: BEFORE EACH MEAL
     Route: 048
  6. BALSALAZIDE [Concomitant]
     Indication: COLITIS ULCERATIVE
     Dosage: 3 TABS, 3 TIMES DAILY
     Route: 048
  7. RAMIPRIL [Concomitant]
     Indication: BLOOD PRESSURE
     Dosage: 2 TABS
     Route: 048
  8. HYDROCHLOROTHIAZIDE [Concomitant]
     Indication: BLOOD PRESSURE
     Route: 048
  9. LOVASTATIN [Concomitant]
     Indication: BLOOD CHOLESTEROL INCREASED
     Route: 048
  10. AMLODIPINE [Concomitant]
     Indication: BLOOD PRESSURE
     Route: 048

REACTIONS (1)
  - Injection site pain [Recovered/Resolved]
